FAERS Safety Report 23462562 (Version 2)
Quarter: 2024Q1

REPORT INFORMATION
  Report Type: Spontaneous
  Country: US (occurrence: US)
  Receive Date: 20240131
  Receipt Date: 20240223
  Transmission Date: 20240410
  Serious: Yes (Other)
  Sender: FDA-Public Use
  Company Number: US-TLX-2024000141

PATIENT
  Age: 71 Year
  Sex: Male
  Weight: 96.16 kg

DRUGS (2)
  1. ILLUCCIX [Suspect]
     Active Substance: GALLIUM GA-68 GOZETOTIDE
     Indication: Product used for unknown indication
     Dosage: RT HAND/ 24G, AT NORMAL RATE
     Route: 040
     Dates: start: 20230106, end: 20230106
  2. ILLUCCIX [Suspect]
     Active Substance: GALLIUM GA-68 GOZETOTIDE
     Indication: Product used for unknown indication
     Dosage: RT AC/24G, AT NORMAL RATE
     Route: 040
     Dates: start: 20230824, end: 20230824

REACTIONS (2)
  - Loss of consciousness [Unknown]
  - Injection site pain [Unknown]

NARRATIVE: CASE EVENT DATE: 20230106
